FAERS Safety Report 8745870 (Version 2)
Quarter: 2013Q1

REPORT INFORMATION
  Report Type: Report from Study
  Country: JP (occurrence: JP)
  Receive Date: 20120827
  Receipt Date: 20130314
  Transmission Date: 20140127
  Serious: Yes (Other)
  Sender: FDA-Public Use
  Company Number: JP-009507513-1208JPN009700

PATIENT
  Age: 65 Year
  Sex: Female
  Weight: 47 kg

DRUGS (13)
  1. PEGINTRON [Suspect]
     Indication: CHRONIC HEPATITIS C
     Dosage: 1.5 MICROGRAM PER KILOGRAM, QW,DAILY DOSE UNKNOWN
     Route: 058
     Dates: start: 20120507, end: 20121015
  2. REBETOL [Suspect]
     Indication: CHRONIC HEPATITIS C
     Dosage: 400 MG, QD
     Route: 048
     Dates: start: 20120507, end: 20120624
  3. REBETOL [Suspect]
     Dosage: 200 MG, QD
     Route: 048
     Dates: start: 20120625, end: 20120730
  4. REBETOL [Suspect]
     Dosage: 400 MG, QD
     Route: 048
     Dates: start: 20120731, end: 20120820
  5. REBETOL [Suspect]
     Dosage: 600 MG, QD
     Route: 048
     Dates: start: 20120821, end: 20121022
  6. TELAVIC [Suspect]
     Indication: CHRONIC HEPATITIS C
     Dosage: 1500 MG, QD
     Route: 048
     Dates: start: 20120507, end: 20120708
  7. LOXONIN [Concomitant]
     Indication: PYREXIA
     Dosage: 1 TAB/DAY AS NEEDED,DAILY DOSE UNKNOWN
     Route: 048
     Dates: start: 20120507, end: 20120507
  8. ALLELOCK [Concomitant]
     Indication: OEDEMA PERIPHERAL
     Dosage: 10 MG, QD
     Route: 048
     Dates: start: 20120509, end: 20120730
  9. ALLELOCK [Concomitant]
     Indication: PROPHYLAXIS
  10. ALLOPURINOL [Concomitant]
     Indication: HYPERURICAEMIA
     Dosage: 200 MG, QD
     Route: 048
     Dates: start: 20120510, end: 20120730
  11. ALLOPURINOL [Concomitant]
     Indication: PROPHYLAXIS
  12. RINDERON-VG [Concomitant]
     Indication: RASH
     Dosage: UNK,DAILY DOSE UNKNOWN
     Route: 061
     Dates: start: 20120625, end: 20120723
  13. FERROMIA [Concomitant]
     Indication: ANAEMIA
     Dosage: 2 DF, QD
     Route: 048
     Dates: start: 20120731, end: 20120806

REACTIONS (7)
  - Rash [Recovering/Resolving]
  - Pyrexia [None]
  - Local swelling [None]
  - Hyperuricaemia [None]
  - Pruritus [None]
  - Erythema [None]
  - Anaemia [None]
